FAERS Safety Report 8278877-1 (Version None)
Quarter: 2012Q2

REPORT INFORMATION
  Report Type: 
  Country: None (occurrence: None)
  Receive Date: 20120412
  Receipt Date: 20120123
  Transmission Date: 20120825
  Serious: No
  Sender: FDA-Public Use
  Company Number: US-ASTRAZENECA-2011SE53919

PATIENT
  Age: 53 Year
  Sex: Female

DRUGS (4)
  1. PREVACID [Concomitant]
  2. NEXIUM [Suspect]
     Route: 048
  3. ANTIBIOTICS [Concomitant]
  4. ZANTAC [Concomitant]

REACTIONS (10)
  - MALAISE [None]
  - ARTHRITIS [None]
  - DRUG DOSE OMISSION [None]
  - DRUG INEFFECTIVE [None]
  - HYPERCHLORHYDRIA [None]
  - DYSPEPSIA [None]
  - GASTRIC DISORDER [None]
  - OROPHARYNGEAL PAIN [None]
  - ABDOMINAL PAIN UPPER [None]
  - ADVERSE EVENT [None]
